FAERS Safety Report 21101735 (Version 3)
Quarter: 2022Q3

REPORT INFORMATION
  Report Type: Spontaneous
  Country: US (occurrence: US)
  Receive Date: 20220719
  Receipt Date: 20220912
  Transmission Date: 20221026
  Serious: No
  Sender: FDA-Public Use
  Company Number: US-PFIZER INC-202200963517

PATIENT
  Age: 63 Year
  Sex: Female

DRUGS (12)
  1. IBRANCE [Suspect]
     Active Substance: PALBOCICLIB
     Indication: Breast cancer metastatic
     Dosage: 125 MG, CYCLIC (DAILY FOR 21 DAYS THEN 7 DAYS OFF)
     Dates: start: 20220701
  2. IBRANCE [Suspect]
     Active Substance: PALBOCICLIB
     Dosage: 125 MG, CYCLIC (DAILY FOR 21 DAYS ON THEN 7 DAYS OFF)
     Dates: start: 20220708
  3. FASLODEX [Concomitant]
     Active Substance: FULVESTRANT
     Dosage: UNK
     Dates: start: 20220701
  4. ALLEGRA-D [FEXOFENADINE HYDROCHLORIDE;PSEUDOEPHEDRINE HYDROCHLORIDE] [Concomitant]
     Dosage: UNK
  5. AMBIEN [Concomitant]
     Active Substance: ZOLPIDEM TARTRATE
     Dosage: UNK
  6. BENADRYL [Concomitant]
     Active Substance: DIPHENHYDRAMINE HYDROCHLORIDE
     Dosage: UNK
  7. BENZONATATE [Concomitant]
     Active Substance: BENZONATATE
  8. DULOXETINE [Concomitant]
     Active Substance: DULOXETINE
     Dosage: UNK
  9. HYDROCHLOROTHIAZIDE [Concomitant]
     Active Substance: HYDROCHLOROTHIAZIDE
     Dosage: UNK
  10. ZOFRAN [Concomitant]
     Active Substance: ONDANSETRON HYDROCHLORIDE
     Dosage: UNK
  11. SYNTHROID [Concomitant]
     Active Substance: LEVOTHYROXINE SODIUM
     Dosage: UNK
  12. TYLENOL [Concomitant]
     Active Substance: ACETAMINOPHEN
     Dosage: UNK

REACTIONS (18)
  - Gait disturbance [Unknown]
  - Neuralgia [Unknown]
  - Headache [Unknown]
  - Abdominal pain upper [Recovering/Resolving]
  - Constipation [Unknown]
  - Rash [Recovered/Resolved]
  - Fatigue [Unknown]
  - Oropharyngeal pain [Unknown]
  - Nausea [Unknown]
  - Arthralgia [Unknown]
  - White blood cell count decreased [Unknown]
  - Infection [Unknown]
  - Diarrhoea [Unknown]
  - Paraesthesia [Not Recovered/Not Resolved]
  - Hypersensitivity [Not Recovered/Not Resolved]
  - Nasal congestion [Not Recovered/Not Resolved]
  - Epistaxis [Not Recovered/Not Resolved]
  - Hypoaesthesia [Not Recovered/Not Resolved]

NARRATIVE: CASE EVENT DATE: 20220701
